FAERS Safety Report 4791890-1 (Version None)
Quarter: 2005Q4

REPORT INFORMATION
  Report Type: 
  Country: None (occurrence: None)
  Receive Date: 20051007
  Receipt Date: 20050802
  Transmission Date: 20060501
  Serious: Yes (Life-Threatening, Hospitalization)
  Sender: FDA-Public Use
  Company Number: PHBS2005JP11148

PATIENT
  Age: 75 Year
  Sex: Male

DRUGS (8)
  1. DIOVAN [Suspect]
     Indication: HYPERTENSION
     Dosage: 40 MG, QD
     Route: 048
     Dates: start: 20040101, end: 20050629
  2. DIOVAN [Suspect]
     Dosage: 80 MG, QD
     Route: 048
     Dates: start: 20050630, end: 20050711
  3. NORVASC [Suspect]
     Indication: HYPERTENSION
     Dosage: 5 MG/DAY
     Route: 048
     Dates: start: 20040101, end: 20050112
  4. GASMOTIN [Concomitant]
     Route: 048
     Dates: start: 20050101
  5. GASPORT [Concomitant]
     Dosage: 20 MG, UNK
     Route: 048
     Dates: start: 20050101
  6. EPADEL [Suspect]
     Indication: ARTERIOSCLEROSIS OBLITERANS
     Dosage: 600 MG/DAY
     Route: 048
     Dates: start: 20040101, end: 20050712
  7. BERAPROST SODIUM [Suspect]
     Indication: ARTERIOSCLEROSIS OBLITERANS
     Dosage: 30 UG, QD
     Dates: start: 20040101, end: 20050712
  8. GASTER [Concomitant]
     Dates: start: 20040101

REACTIONS (10)
  - DEMENTIA [None]
  - DISSEMINATED INTRAVASCULAR COAGULATION [None]
  - ECCHYMOSIS [None]
  - HAEMORRHAGIC DIATHESIS [None]
  - MARROW HYPERPLASIA [None]
  - PALLOR [None]
  - PETECHIAE [None]
  - PURPURA [None]
  - THROMBOCYTOPENIA [None]
  - THROMBOSIS [None]
